FAERS Safety Report 8376454-5 (Version None)
Quarter: 2012Q2

REPORT INFORMATION
  Report Type: 
  Country: None (occurrence: None)
  Receive Date: 20120518
  Receipt Date: 20120504
  Transmission Date: 20120825
  Serious: Yes (Disabling)
  Sender: FDA-Public Use
  Company Number: JP-2012-13910

PATIENT
  Age: 61 Year
  Sex: Male
  Weight: 68 kg

DRUGS (20)
  1. PLAVIX [Concomitant]
  2. SAMSCA [Suspect]
     Indication: FLUID RETENTION
     Dosage: 15 MG MILLIGRAM(S), QAM, ORAL
     Route: 048
     Dates: start: 20111223, end: 20120207
  3. DIOVAN [Concomitant]
  4. HUMULIN N [Concomitant]
  5. MAGMITT (MAGNESIUM OXIDE) [Concomitant]
  6. LASIX [Suspect]
     Indication: CARDIAC FAILURE
     Dosage: 40 MG MILLIGRAM(S), DAILY DOSE, INTRAVENOUS
     Route: 042
     Dates: start: 20111206, end: 20120106
  7. NOVO HEPARIN (HEPARIN) [Concomitant]
  8. XYLOCAINE [Concomitant]
  9. WARFARIN SODIUM [Concomitant]
  10. PIMOBENDAN (PIMOBENDAN) [Concomitant]
  11. ALDACTONE [Suspect]
     Indication: CARDIAC FAILURE
     Dosage: 25 MG MILLIGRAM(S), DAILY DOSE, ORAL
     Route: 048
     Dates: start: 20111216
  12. BASEN (VOGLIBOSE) [Concomitant]
  13. BISOPROLOL FUMARATE [Concomitant]
  14. ADALAT [Concomitant]
  15. HANP (CARPERITIDE(GENETICAL RECOMBINATION)) INJECTION [Suspect]
     Indication: CARDIAC FAILURE
     Dosage: 2000 MCG, DAILY DOSE, INTRAVENOUS
     Route: 042
     Dates: start: 20111206, end: 20111212
  16. VENECTOMIN (POTASSIUM CANRENOATE) INJECTION [Suspect]
     Indication: CARDIAC FAILURE
     Dosage: 100 MG MILLIGRAM(S), DAILY DOSE, INTRAVENOUS
     Route: 042
     Dates: start: 20111215, end: 20111215
  17. CRESTOR [Concomitant]
  18. NOVOLIN 30R (INSULIN HUMAN, INSULIN HUMAN INJECTION, ISOPHANE) [Concomitant]
  19. CARVEDILOL [Concomitant]
  20. NOVORAPID (INSULIN ASPART(GENETICAL RECOMBINATION)) [Concomitant]

REACTIONS (6)
  - HYPERKALAEMIA [None]
  - URINE OUTPUT INCREASED [None]
  - RENAL IMPAIRMENT [None]
  - HYPERURICAEMIA [None]
  - CARDIAC FAILURE [None]
  - THIRST [None]
